FAERS Safety Report 9529199 (Version 1)
Quarter: 2013Q1

REPORT INFORMATION
  Report Type: Spontaneous
  Country: US (occurrence: None)
  Receive Date: 20130320
  Receipt Date: 20130320
  Transmission Date: 20140127
  Serious: Yes (Death)
  Sender: FDA-Public Use
  Company Number: 075706

PATIENT
  Age: 27 Year
  Sex: Male

DRUGS (6)
  1. ALPRAZOLAM [Suspect]
  2. MORPHINE [Suspect]
  3. HYDROMORPHONE [Suspect]
  4. OXAZEPAM [Suspect]
  5. TEMAZEPAM [Concomitant]
  6. MARIJUANA [Suspect]

REACTIONS (2)
  - Cardio-respiratory arrest [None]
  - Toxicity to various agents [None]
